FAERS Safety Report 25762902 (Version 1)
Quarter: 2025Q3

REPORT INFORMATION
  Report Type: Other
  Country: CN (occurrence: CN)
  Receive Date: 20250904
  Receipt Date: 20250904
  Transmission Date: 20251021
  Serious: Yes (Life-Threatening, Hospitalization, Other)
  Sender: BRECKENRIDGE PHARMACEUTICAL, INC.
  Company Number: CN-Breckenridge Pharmaceutical, Inc.-2183856

PATIENT
  Age: 77 Year
  Sex: Female

DRUGS (2)
  1. RIVAROXABAN [Suspect]
     Active Substance: RIVAROXABAN
     Indication: Atrial fibrillation
  2. FLUCONAZOLE [Interacting]
     Active Substance: FLUCONAZOLE

REACTIONS (3)
  - Haemothorax [Recovering/Resolving]
  - Drug interaction [Recovering/Resolving]
  - Oesophageal candidiasis [Recovering/Resolving]
